FAERS Safety Report 21322546 (Version 1)
Quarter: 2022Q3

REPORT INFORMATION
  Report Type: Spontaneous
  Country: JP (occurrence: JP)
  Receive Date: 20220912
  Receipt Date: 20220912
  Transmission Date: 20221027
  Serious: Yes (Life-Threatening, Hospitalization, Other)
  Sender: FDA-Public Use
  Company Number: JP-MLMSERVICE-20220823-3752457-1

PATIENT
  Sex: Male

DRUGS (9)
  1. PHENYLEPHRINE HYDROCHLORIDE [Suspect]
     Active Substance: PHENYLEPHRINE HYDROCHLORIDE
     Route: 064
  2. FENTANYL [Suspect]
     Active Substance: FENTANYL
     Route: 064
  3. ROCURONIUM [Suspect]
     Active Substance: ROCURONIUM BROMIDE
     Route: 064
  4. MIDAZOLAM [Suspect]
     Active Substance: MIDAZOLAM
     Route: 064
  5. PROPOFOL [Suspect]
     Active Substance: PROPOFOL
     Route: 064
  6. REMIFENTANIL [Suspect]
     Active Substance: REMIFENTANIL
     Route: 064
  7. PREDNISOLONE [Concomitant]
     Active Substance: PREDNISOLONE
     Route: 064
  8. DOPAMINE [Concomitant]
     Active Substance: DOPAMINE HYDROCHLORIDE
     Route: 064
  9. NOREPINEPHRINE [Concomitant]
     Active Substance: NOREPINEPHRINE
     Route: 064

REACTIONS (3)
  - Neonatal respiratory depression [Recovered/Resolved]
  - Neonatal asphyxia [Recovered/Resolved]
  - Foetal distress syndrome [Recovered/Resolved]
